FAERS Safety Report 22362085 (Version 5)
Quarter: 2023Q4

REPORT INFORMATION
  Report Type: Report from Study
  Country: JP (occurrence: JP)
  Receive Date: 20230524
  Receipt Date: 20231006
  Transmission Date: 20240109
  Serious: Yes (Death, Hospitalization, Other)
  Sender: FDA-Public Use
  Company Number: JP-TAKEDA-2023TJP006157

PATIENT
  Age: 81 Year
  Sex: Male
  Weight: 57.9 kg

DRUGS (11)
  1. LEUPROLIDE ACETATE [Suspect]
     Active Substance: LEUPROLIDE ACETATE
     Indication: Bulbospinal muscular atrophy congenital
     Dosage: 11.25 MILLIGRAM, Q3MONTHS
     Route: 058
     Dates: start: 20180426, end: 20230112
  2. FUROSEMIDE [Concomitant]
     Active Substance: FUROSEMIDE
     Indication: Bulbospinal muscular atrophy congenital
     Dosage: 10 MILLIGRAM
     Route: 065
     Dates: start: 20230105
  3. DAPAGLIFLOZIN [Concomitant]
     Active Substance: DAPAGLIFLOZIN
     Indication: Cardiac failure chronic
     Dosage: 10 MILLIGRAM
     Route: 065
     Dates: start: 20221221
  4. BISOPROLOL FUMARATE [Concomitant]
     Active Substance: BISOPROLOL FUMARATE
     Indication: Bulbospinal muscular atrophy congenital
     Dosage: 0.625 MILLIGRAM
     Route: 065
     Dates: start: 20221222
  5. BENZBROMARONE [Concomitant]
     Active Substance: BENZBROMARONE
     Indication: Product used for unknown indication
     Dosage: 25 MILLIGRAM
     Route: 065
     Dates: start: 20221212
  6. MIRABEGRON [Concomitant]
     Active Substance: MIRABEGRON
     Indication: Hypertonic bladder
     Dosage: 25 MILLIGRAM
     Route: 065
     Dates: start: 20221212
  7. SPIRONOLACTONE [Concomitant]
     Active Substance: SPIRONOLACTONE
     Indication: Bulbospinal muscular atrophy congenital
     Dosage: 25 MILLIGRAM
     Route: 065
     Dates: start: 20221217
  8. LOSARTAN POTASSIUM [Concomitant]
     Active Substance: LOSARTAN POTASSIUM
     Indication: Bulbospinal muscular atrophy congenital
     Dosage: 25 MILLIGRAM
     Route: 065
     Dates: start: 20221231
  9. AMITIZA [Concomitant]
     Active Substance: LUBIPROSTONE
     Indication: Constipation
     Dosage: 24 MICROGRAM
     Route: 065
     Dates: start: 20221212
  10. ROZEREM [Concomitant]
     Active Substance: RAMELTEON
     Indication: Insomnia
     Dosage: 8 MILLIGRAM
     Route: 065
     Dates: start: 20220120
  11. EDOXABAN TOSYLATE [Concomitant]
     Active Substance: EDOXABAN TOSYLATE
     Indication: Atrial fibrillation
     Dosage: 30 MILLIGRAM
     Route: 065
     Dates: start: 20221212

REACTIONS (5)
  - Pneumonia aspiration [Fatal]
  - Hypertension [Recovered/Resolved]
  - Cardiac failure [Fatal]
  - Pneumonia [Fatal]
  - Hyperuricaemia [Recovered/Resolved]

NARRATIVE: CASE EVENT DATE: 20221212
